FAERS Safety Report 6821086-0 (Version None)
Quarter: 2010Q3

REPORT INFORMATION
  Report Type: 
  Country: None (occurrence: None)
  Receive Date: 20100707
  Receipt Date: 20071227
  Transmission Date: 20110219
  Serious: No
  Sender: FDA-Public Use
  Company Number: US-PFIZER INC-2008000213

PATIENT
  Age: 42 Year
  Sex: Male
  Weight: 88.181 kg

DRUGS (5)
  1. HYDROXYZINE PAMOATE [Suspect]
     Indication: ANXIETY
     Dates: start: 20071128
  2. OMEPRAZOLE [Concomitant]
  3. ETODOLAC [Concomitant]
  4. ATENOLOL [Concomitant]
  5. NICOTINE [Concomitant]

REACTIONS (1)
  - DRUG SCREEN FALSE POSITIVE [None]
